FAERS Safety Report 8559720-X (Version None)
Quarter: 2012Q2

REPORT INFORMATION
  Report Type: 
  Country: None (occurrence: None)
  Receive Date: 20120418
  Receipt Date: 20100625
  Transmission Date: 20120825
  Serious: Yes (Other)
  Sender: FDA-Public Use
  Company Number: PHHY2010US42087

PATIENT
  Age: 77 Year
  Sex: Male

DRUGS (11)
  1. PLAVIX [Concomitant]
  2. MELOXICAM [Concomitant]
  3. VALERIAN (VALERIANA OFFICINALIS) [Concomitant]
  4. OMEPRAZOLE [Concomitant]
  5. MULTI-VITAMINS [Concomitant]
  6. DIOVAN [Suspect]
     Dosage: 1 TABLET (80 MG)/DAILY, 2 TABLETS (80 MG)/DAILY
  7. LISINOPRIL [Suspect]
  8. LIPITOR [Concomitant]
  9. COREG [Concomitant]
  10. ASPIRIN [Concomitant]
  11. HYDROXYZINE [Concomitant]

REACTIONS (5)
  - DIZZINESS [None]
  - BLOOD PRESSURE INCREASED [None]
  - BLOOD PRESSURE INADEQUATELY CONTROLLED [None]
  - COUGH [None]
  - DRUG INEFFECTIVE [None]
